FAERS Safety Report 7601726-9 (Version None)
Quarter: 2011Q3

REPORT INFORMATION
  Report Type: 
  Country: None (occurrence: None)
  Receive Date: 20110711
  Receipt Date: 20110704
  Transmission Date: 20111222
  Serious: Yes (Hospitalization)
  Sender: FDA-Public Use
  Company Number: US-TEVA-289180USA

PATIENT
  Age: 39 Year
  Sex: Female

DRUGS (1)
  1. ACETAMINOPHEN AND OXYCODONE HCL [Suspect]
     Indication: ANALGESIC THERAPY
     Dosage: 20 MILLIGRAM;

REACTIONS (3)
  - HYPOTENSION [None]
  - FATIGUE [None]
  - ENDOCRINE DISORDER [None]
